FAERS Safety Report 14853926 (Version 2)
Quarter: 2018Q2

REPORT INFORMATION
  Report Type: Spontaneous
  Country: US (occurrence: US)
  Receive Date: 20180507
  Receipt Date: 20180625
  Transmission Date: 20180711
  Serious: No
  Sender: FDA-Public Use
  Company Number: US-PFIZER INC-2018184303

PATIENT
  Age: 59 Year
  Sex: Female
  Weight: 65.32 kg

DRUGS (5)
  1. AMOXICILLIN-CLAV [Concomitant]
     Dosage: UNK, [AMOXICILLIN 875 MG/CLAVULANATE 125 MG]
  2. XELJANZ [Concomitant]
     Active Substance: TOFACITINIB CITRATE
     Indication: RHEUMATOID ARTHRITIS
     Dosage: 5 MG, 2X/DAY
     Route: 048
     Dates: start: 20180401
  3. LEFLUNOMIDE. [Concomitant]
     Active Substance: LEFLUNOMIDE
     Dosage: 10 MG, 1X/DAY
  4. BENZONATATE. [Suspect]
     Active Substance: BENZONATATE
     Indication: SINUS CONGESTION
     Dosage: 100 MG, 2X/DAY
     Dates: start: 20180420, end: 2018
  5. XELJANZ [Concomitant]
     Active Substance: TOFACITINIB CITRATE
     Dosage: 5 MG, 1X/DAY

REACTIONS (3)
  - Product use in unapproved indication [Unknown]
  - Intentional product misuse [Unknown]
  - Somnolence [Recovered/Resolved]

NARRATIVE: CASE EVENT DATE: 20180420
